FAERS Safety Report 6163897-3 (Version None)
Quarter: 2009Q2

REPORT INFORMATION
  Report Type: 
  Country: None (occurrence: None)
  Receive Date: 20090422
  Receipt Date: 20090415
  Transmission Date: 20091009
  Serious: Yes (Hospitalization, Other)
  Sender: FDA-Public Use
  Company Number: FR-GILEAD-2009-0020783

PATIENT
  Sex: Female

DRUGS (8)
  1. TRUVADA [Suspect]
     Indication: HIV INFECTION
     Route: 048
     Dates: start: 20090216, end: 20090309
  2. VALACYCLOVIR HCL [Suspect]
     Indication: HERPES ZOSTER
     Route: 048
     Dates: start: 20090305, end: 20090309
  3. REYATAZ [Suspect]
     Indication: HIV INFECTION
     Route: 048
     Dates: start: 20090216, end: 20090303
  4. PRETERAX [Suspect]
     Indication: HYPERTENSION
  5. NORVIR [Concomitant]
     Indication: HIV INFECTION
  6. FLURORO URACILE [Concomitant]
     Indication: BREAST CANCER
  7. EPIRUBICIN [Concomitant]
     Indication: BREAST CANCER
  8. CYCLOPHOSPHAMIDE [Concomitant]
     Indication: BREAST CANCER

REACTIONS (6)
  - CELL DEATH [None]
  - CHOLESTASIS [None]
  - DIARRHOEA HAEMORRHAGIC [None]
  - PYREXIA [None]
  - RENAL FAILURE ACUTE [None]
  - RENAL TUBULAR NECROSIS [None]
